FAERS Safety Report 14673820 (Version 1)
Quarter: 2018Q1

REPORT INFORMATION
  Report Type: Spontaneous
  Country: US (occurrence: US)
  Receive Date: 20180322
  Receipt Date: 20180322
  Transmission Date: 20180509
  Serious: Yes (Death)
  Sender: FDA-Public Use
  Company Number: None

PATIENT
  Age: 80 Year
  Sex: Male

DRUGS (9)
  1. LASIX [Concomitant]
     Active Substance: FUROSEMIDE
  2. REGRANEX [Suspect]
     Active Substance: BECAPLERMIN
     Dosage: ?          OTHER FREQUENCY:12 HOURS;?
     Route: 061
  3. ASMANEX HFA [Concomitant]
     Active Substance: MOMETASONE FUROATE
  4. SPIRIVA HANIHALER [Concomitant]
  5. PLAVIX [Concomitant]
     Active Substance: CLOPIDOGREL BISULFATE
  6. LEVEMIR [Concomitant]
     Active Substance: INSULIN DETEMIR
  7. DIGOXIN. [Concomitant]
     Active Substance: DIGOXIN
  8. ZANTAC [Concomitant]
     Active Substance: RANITIDINE HYDROCHLORIDE
  9. DIOVAN [Concomitant]
     Active Substance: VALSARTAN

REACTIONS (1)
  - Death [None]
